FAERS Safety Report 24273032 (Version 1)
Quarter: 2024Q3

REPORT INFORMATION
  Report Type: Spontaneous
  Country: CN (occurrence: CN)
  Receive Date: 20240902
  Receipt Date: 20240902
  Transmission Date: 20241017
  Serious: Yes (Hospitalization, Other)
  Sender: BEIGENE
  Company Number: CN-BEIGENE-BGN-2024-013361

PATIENT

DRUGS (1)
  1. TISLELIZUMAB [Suspect]
     Active Substance: TISLELIZUMAB
     Indication: Transitional cell cancer of the renal pelvis and ureter
     Dosage: 200 MILLIGRAM
     Route: 041
     Dates: start: 20240726

REACTIONS (6)
  - Anaemia [Recovering/Resolving]
  - Hypoproteinaemia [Recovering/Resolving]
  - Urinary tract infection [Recovering/Resolving]
  - Constipation [Recovering/Resolving]
  - Malignant ascites [Unknown]
  - Localised oedema [Unknown]

NARRATIVE: CASE EVENT DATE: 20240805
